FAERS Safety Report 9149763 (Version 1)
Quarter: 2013Q1

REPORT INFORMATION
  Report Type: Spontaneous
  Country: US (occurrence: None)
  Receive Date: 20130301
  Receipt Date: 20130301
  Transmission Date: 20140127
  Serious: Yes (Hospitalization)
  Sender: FDA-Public Use
  Company Number: None

PATIENT
  Age: 50 Year
  Sex: Male
  Weight: 85.28 kg

DRUGS (1)
  1. PROPOFOL [Suspect]

REACTIONS (3)
  - Pyrexia [None]
  - Chills [None]
  - Hyperhidrosis [None]
